FAERS Safety Report 18883575 (Version 2)
Quarter: 2021Q1

REPORT INFORMATION
  Report Type: Report from Study
  Country: US (occurrence: US)
  Receive Date: 20210211
  Receipt Date: 20210215
  Transmission Date: 20210420
  Serious: Yes (Death, Other)
  Sender: FDA-Public Use
  Company Number: US-AGIOS-2101US02409

PATIENT

DRUGS (1)
  1. TIBSOVO [Suspect]
     Active Substance: IVOSIDENIB
     Indication: BRAIN NEOPLASM MALIGNANT
     Dosage: 250 MILLIGRAM, 2 TABLET (500 MG), QD
     Route: 048
     Dates: start: 20201020

REACTIONS (3)
  - Glioblastoma multiforme [Fatal]
  - Disease progression [Unknown]
  - Off label use [Recovered/Resolved]

NARRATIVE: CASE EVENT DATE: 20201020
